FAERS Safety Report 6516696-4 (Version None)
Quarter: 2009Q4

REPORT INFORMATION
  Report Type: 
  Country: None (occurrence: None)
  Receive Date: 20091223
  Receipt Date: 20091215
  Transmission Date: 20100525
  Serious: Yes (Hospitalization)
  Sender: FDA-Public Use
  Company Number: IT-TEVA-218594ISR

PATIENT
  Sex: Male
  Weight: 59 kg

DRUGS (7)
  1. CISPLATIN [Suspect]
     Indication: NON-SMALL CELL LUNG CANCER
     Route: 042
     Dates: start: 20091203
  2. AXITINIB [Suspect]
     Indication: NON-SMALL CELL LUNG CANCER
     Route: 048
     Dates: start: 20091204
  3. PEMETREXED [Suspect]
     Indication: NON-SMALL CELL LUNG CANCER
     Route: 042
     Dates: start: 20091203
  4. FOLIC ACID [Concomitant]
     Indication: VITAMIN SUPPLEMENTATION
     Dates: start: 20091126
  5. TROPISETRON [Concomitant]
     Indication: PREMEDICATION
     Dates: start: 20091203, end: 20091203
  6. DESAMETASONE [Concomitant]
     Indication: PREMEDICATION
     Dates: start: 20091203, end: 20091203
  7. VITAMIN B12 NOS [Concomitant]
     Indication: VITAMIN SUPPLEMENTATION
     Dates: start: 20091126, end: 20091126

REACTIONS (1)
  - FEMORAL ARTERY OCCLUSION [None]
